FAERS Safety Report 4666953-1 (Version None)
Quarter: 2005Q2

REPORT INFORMATION
  Report Type: 
  Country: None (occurrence: None)
  Receive Date: 20050518
  Receipt Date: 20040714
  Transmission Date: 20051028
  Serious: Yes (Other)
  Sender: FDA-Public Use
  Company Number: 2004223612US

PATIENT
  Age: 51 Year
  Sex: Female

DRUGS (3)
  1. PROVERA [Suspect]
     Indication: HORMONE REPLACEMENT THERAPY
     Dates: start: 19900101, end: 19950401
  2. PREMARIN [Suspect]
     Dates: start: 19900101, end: 19950401
  3. PREMPRO [Suspect]
     Dates: start: 19950401, end: 19971101

REACTIONS (1)
  - DEEP VEIN THROMBOSIS [None]
